FAERS Safety Report 6440614-0 (Version None)
Quarter: 2009Q4

REPORT INFORMATION
  Report Type: 
  Country: None (occurrence: None)
  Receive Date: 20091113
  Receipt Date: 20091028
  Transmission Date: 20100525
  Serious: Yes (Other)
  Sender: FDA-Public Use
  Company Number: ES-GENENTECH-268003

PATIENT
  Age: 59 Year
  Sex: Female

DRUGS (8)
  1. MABTHERA [Suspect]
     Indication: KIDNEY TRANSPLANT REJECTION
     Dosage: 500 MG, SINGLE
  2. SULFAMETHOXAZOLE AND TRIMETHOPRIM [Suspect]
     Indication: DRUG USE FOR UNKNOWN INDICATION
  3. IMMUNE GLOBULIN NOS [Concomitant]
     Indication: TRANSPLANT REJECTION
  4. METHYLPREDNISOLONE [Concomitant]
     Indication: TRANSPLANT REJECTION
     Route: 042
  5. ORTHOCLONE OKT3 [Concomitant]
     Indication: TRANSPLANT REJECTION
     Dosage: 5 MG, FOR 5 DAYS
  6. MYCOPHENOLATE SODIUM [Concomitant]
     Indication: IMMUNOSUPPRESSION
     Dosage: 540 MG, BID
  7. TACROLIMUS [Concomitant]
     Indication: IMMUNOSUPPRESSION
  8. PREDNISOLONE [Concomitant]
     Indication: IMMUNOSUPPRESSION
     Dosage: 5 MG, QD

REACTIONS (1)
  - PNEUMOCYSTIS JIROVECI PNEUMONIA [None]
